FAERS Safety Report 8913045 (Version 2)
Quarter: 2013Q1

REPORT INFORMATION
  Report Type: Spontaneous
  Country: US (occurrence: None)
  Receive Date: 20121113
  Receipt Date: 20130109
  Transmission Date: 20140127
  Serious: Yes (Hospitalization, Other)
  Sender: FDA-Public Use
  Company Number: 2012-000146

PATIENT
  Age: 59 Year
  Sex: Female

DRUGS (7)
  1. ACTONEL [Suspect]
     Dosage: DOSAGE / REGIMEN UNKNOWN, ORAL
     Route: 048
  2. FOSAMAX  PLUS D [Suspect]
     Dosage: 70 MG,  1/WEEK,  ORAL
     Route: 048
     Dates: start: 20080613, end: 200912
  3. ALENDRONATE SODIUM (ALENDRONATE SODIUM) (ALENDRONATE SODIUM) [Suspect]
     Dosage: 1/WEEK
     Route: 048
     Dates: start: 201001
  4. FOSAMAX (ALENDRONATE SODIUM) [Suspect]
     Dosage: 1/WEEK, ORAL
     Route: 048
     Dates: end: 2010
  5. TRAMADOL (TRAMADOL) [Concomitant]
  6. VENLAFAXINE HCL [Concomitant]
  7. MULTIVITAMINS, PLAIN [Concomitant]

REACTIONS (10)
  - Femur fracture [None]
  - Pathological fracture [None]
  - Stress fracture [None]
  - Fall [None]
  - Pain in extremity [None]
  - Pain in extremity [None]
  - Arthralgia [None]
  - Gait disturbance [None]
  - Refusal of treatment by patient [None]
  - Exostosis [None]
